FAERS Safety Report 10721911 (Version 2)
Quarter: 2015Q1

REPORT INFORMATION
  Report Type: Spontaneous
  Country: CA (occurrence: CA)
  Receive Date: 20150119
  Receipt Date: 20150123
  Transmission Date: 20150721
  Serious: Yes (Hospitalization, Other)
  Sender: FDA-Public Use
  Company Number: CA-BAYER-2015-005884

PATIENT
  Sex: Female

DRUGS (3)
  1. XARELTO [Suspect]
     Active Substance: RIVAROXABAN
     Indication: PRODUCT USED FOR UNKNOWN INDICATION
     Dosage: UNK
     Route: 048
  2. XARELTO [Interacting]
     Active Substance: RIVAROXABAN
     Indication: HEART RATE IRREGULAR
  3. ASPRIN [Interacting]
     Active Substance: ASPIRIN
     Indication: ARRHYTHMIA

REACTIONS (8)
  - Haemoptysis [None]
  - Off label use [None]
  - Pneumonia [None]
  - Paraplegia [None]
  - Spinal cord haemorrhage [None]
  - Nasopharyngitis [None]
  - Heart rate abnormal [None]
  - Drug interaction [None]

NARRATIVE: CASE EVENT DATE: 201403
